FAERS Safety Report 7689745-8 (Version None)
Quarter: 2011Q3

REPORT INFORMATION
  Report Type: 
  Country: None (occurrence: None)
  Receive Date: 20110817
  Receipt Date: 20110803
  Transmission Date: 20111222
  Serious: Yes (Death, Other)
  Sender: FDA-Public Use
  Company Number: JP-SPECTRUM PHARMACEUTICALS, INC.-11-Z-JP-00168

PATIENT

DRUGS (8)
  1. ZEVALIN [Suspect]
     Indication: FOLLICLE CENTRE LYMPHOMA, FOLLICULAR GRADE I, II, III STAGE III
     Dosage: 716 MBQ, SINGLE
     Route: 042
     Dates: start: 20090729, end: 20090729
  2. RITUXIMAB [Suspect]
     Dosage: 250 MG/M2, SINGLE
     Route: 042
     Dates: start: 20090721, end: 20090721
  3. ZEVALIN [Suspect]
     Dosage: 130 MBQ, SINGLE
     Route: 042
     Dates: start: 20090721, end: 20090721
  4. RITUXIMAB [Suspect]
     Dosage: 250 MG/M2, QD
     Route: 042
     Dates: start: 20090729, end: 20090729
  5. FAMOTIDINE [Concomitant]
     Dosage: UNK
     Dates: start: 20090428
  6. ANTIHISTAMINES [Concomitant]
     Dosage: UNK
     Dates: start: 20090721, end: 20090721
  7. OTHER ANALGESICS AND ANTIPYRETICS [Concomitant]
     Dosage: UNK
     Dates: start: 20090721, end: 20090721
  8. GLICLAZIDE [Concomitant]
     Dosage: UNK
     Dates: start: 20090428

REACTIONS (6)
  - DISEASE PROGRESSION [None]
  - RED BLOOD CELL COUNT DECREASED [None]
  - HAEMOGLOBIN DECREASED [None]
  - HAEMATOCRIT DECREASED [None]
  - PLATELET COUNT DECREASED [None]
  - WHITE BLOOD CELL COUNT DECREASED [None]
